FAERS Safety Report 25769471 (Version 1)
Quarter: 2025Q3

REPORT INFORMATION
  Report Type: Spontaneous
  Country: US (occurrence: US)
  Receive Date: 20250906
  Receipt Date: 20250906
  Transmission Date: 20251020
  Serious: No
  Sender: UNITED THERAPEUTICS
  Company Number: US-UNITED THERAPEUTICS-UNT-2025-030570

PATIENT
  Age: 66 Year
  Sex: Male

DRUGS (14)
  1. ORENITRAM [Suspect]
     Active Substance: TREPROSTINIL
     Indication: Pulmonary arterial hypertension
  2. ORENITRAM [Suspect]
     Active Substance: TREPROSTINIL
     Indication: Atrial septal defect
  3. ORENITRAM [Suspect]
     Active Substance: TREPROSTINIL
     Indication: Right-to-left cardiac shunt
  4. SILDENAFIL [Concomitant]
     Active Substance: SILDENAFIL
     Indication: Pulmonary arterial hypertension
  5. SILDENAFIL [Concomitant]
     Active Substance: SILDENAFIL
     Indication: Atrial septal defect
  6. SILDENAFIL [Concomitant]
     Active Substance: SILDENAFIL
     Indication: Right-to-left cardiac shunt
  7. BOSENTAN [Concomitant]
     Active Substance: BOSENTAN
     Indication: Pulmonary arterial hypertension
  8. BOSENTAN [Concomitant]
     Active Substance: BOSENTAN
     Indication: Atrial septal defect
  9. BOSENTAN [Concomitant]
     Active Substance: BOSENTAN
     Indication: Right-to-left cardiac shunt
  10. ADEMPAS [Concomitant]
     Active Substance: RIOCIGUAT
     Indication: Pulmonary arterial hypertension
  11. ADEMPAS [Concomitant]
     Active Substance: RIOCIGUAT
     Indication: Atrial septal defect
  12. ADEMPAS [Concomitant]
     Active Substance: RIOCIGUAT
     Indication: Right-to-left cardiac shunt
  13. PEPCID [Concomitant]
     Active Substance: FAMOTIDINE
     Indication: Product used for unknown indication
     Dosage: UNK, BID
  14. FLUCONAZOLE [Concomitant]
     Active Substance: FLUCONAZOLE
     Indication: Product used for unknown indication

REACTIONS (1)
  - Drug intolerance [Unknown]
